FAERS Safety Report 11663744 (Version 2)
Quarter: 2015Q4

REPORT INFORMATION
  Report Type: Spontaneous
  Country: NO (occurrence: NO)
  Receive Date: 20151027
  Receipt Date: 20151231
  Transmission Date: 20160304
  Serious: Yes (Hospitalization)
  Sender: FDA-Public Use
  Company Number: NO-ROCHE-1650338

PATIENT
  Age: 52 Year
  Sex: Female

DRUGS (4)
  1. ROACTEMRA [Suspect]
     Active Substance: TOCILIZUMAB
     Indication: RHEUMATOID ARTHRITIS
     Route: 058
     Dates: start: 20150826, end: 20150926
  2. FOLSYRE [Concomitant]
     Indication: RHEUMATOID ARTHRITIS
     Route: 048
  3. METEX (METHOTREXATE) [Concomitant]
     Active Substance: METHOTREXATE
     Indication: RHEUMATOID ARTHRITIS
     Route: 058
  4. ERY-MAX [Concomitant]
     Active Substance: ERYTHROMYCIN
     Indication: UPPER RESPIRATORY TRACT INFECTION
     Route: 048
     Dates: start: 201509

REACTIONS (5)
  - Oedema peripheral [Recovering/Resolving]
  - Skin mass [Recovering/Resolving]
  - Throat tightness [Recovering/Resolving]
  - Pain [Recovering/Resolving]
  - Rash pustular [Recovering/Resolving]

NARRATIVE: CASE EVENT DATE: 20150921
